FAERS Safety Report 7502117-1 (Version None)
Quarter: 2011Q2

REPORT INFORMATION
  Report Type: 
  Country: None (occurrence: None)
  Receive Date: 20110525
  Receipt Date: 20110517
  Transmission Date: 20111010
  Serious: Yes (Death)
  Sender: FDA-Public Use
  Company Number: JP-BAYER-200914265BYL

PATIENT
  Age: 80 Year
  Sex: Male
  Weight: 50 kg

DRUGS (6)
  1. BIOFERMIN [Concomitant]
     Indication: DIARRHOEA
     Dosage: DAILY DOSE 3 G
     Route: 048
     Dates: start: 20091204, end: 20110406
  2. URSO 250 [Concomitant]
     Indication: HEPATITIS
     Dosage: DAILY DOSE 600 MG
     Route: 048
     Dates: start: 20080701, end: 20110406
  3. NEXAVAR [Suspect]
     Indication: HEPATIC NEOPLASM MALIGNANT
     Dosage: 400 MG, BID
     Route: 048
     Dates: start: 20091023, end: 20110203
  4. NEXAVAR [Suspect]
     Dosage: DAILY DOSE 400 MG
     Route: 048
     Dates: start: 20110204, end: 20110310
  5. OMEPRAZOLE [Concomitant]
     Indication: REFLUX OESOPHAGITIS
     Dosage: DAILY DOSE 20 MG
     Route: 048
     Dates: start: 20080701, end: 20110406
  6. MUCOSTA [Concomitant]
     Indication: REFLUX OESOPHAGITIS
     Dosage: DAILY DOSE 300 MG
     Route: 048
     Dates: start: 20080701, end: 20110406

REACTIONS (7)
  - GASTROINTESTINAL HAEMORRHAGE [None]
  - ANAEMIA [None]
  - DIARRHOEA [None]
  - ASCITES [None]
  - HEPATIC FAILURE [None]
  - ENCEPHALOPATHY [None]
  - RASH [None]
